FAERS Safety Report 7420446-7 (Version None)
Quarter: 2011Q2

REPORT INFORMATION
  Report Type: 
  Country: None (occurrence: None)
  Receive Date: 20110418
  Receipt Date: 20110412
  Transmission Date: 20111010
  Serious: Yes (Other)
  Sender: FDA-Public Use
  Company Number: US-PFIZER INC-2011080959

PATIENT
  Sex: Female
  Weight: 64.399 kg

DRUGS (4)
  1. ZOLOFT [Concomitant]
     Dosage: 100MG ONE AND HALF TABLET
  2. DEPAKOTE [Concomitant]
     Dosage: 500 MG, 2X/DAY
  3. LIBRAX [Concomitant]
     Dosage: 20MG, UNK
  4. LYRICA [Suspect]
     Indication: NEURALGIA
     Dosage: 150 MG, 1X/DAY
     Route: 048
     Dates: start: 20090101, end: 20110401

REACTIONS (8)
  - CONFUSIONAL STATE [None]
  - DISTURBANCE IN ATTENTION [None]
  - DEPRESSION [None]
  - FEELING ABNORMAL [None]
  - ABNORMAL BEHAVIOUR [None]
  - INCORRECT DOSE ADMINISTERED [None]
  - SUICIDAL IDEATION [None]
  - DISORIENTATION [None]
